FAERS Safety Report 9314026 (Version 1)
Quarter: 2013Q2

REPORT INFORMATION
  Report Type: Spontaneous
  Country: US (occurrence: US)
  Receive Date: 20130529
  Receipt Date: 20130529
  Transmission Date: 20140414
  Serious: No
  Sender: FDA-Public Use
  Company Number: US-009507513-1305USA013541

PATIENT
  Age: 62 Year
  Sex: Female
  Weight: 62.13 kg

DRUGS (4)
  1. VICTRELIS [Suspect]
     Dosage: 4 DF, TID
     Route: 048
  2. ADVIL [Concomitant]
  3. VITAMINS (UNSPECIFIED) [Concomitant]
  4. LEVOTHYROXINE SODIUM [Concomitant]

REACTIONS (3)
  - Fatigue [Unknown]
  - Alopecia [Unknown]
  - Alopecia [Unknown]
